FAERS Safety Report 26118315 (Version 1)
Quarter: 2025Q4

REPORT INFORMATION
  Report Type: Spontaneous
  Country: US (occurrence: US)
  Receive Date: 20251203
  Receipt Date: 20251203
  Transmission Date: 20260117
  Serious: Yes (Life-Threatening, Hospitalization)
  Sender: BAUSCH AND LOMB
  Company Number: US-BAUSCH-BH-2025-021111

PATIENT
  Age: 76 Year
  Sex: Female

DRUGS (2)
  1. METFORMIN [Interacting]
     Active Substance: METFORMIN HYDROCHLORIDE
     Indication: Type 2 diabetes mellitus
     Dosage: BID
     Route: 065
  2. BISMUTH SUBSALICYLATE [Interacting]
     Active Substance: BISMUTH SUBSALICYLATE
     Indication: Product used for unknown indication
     Dosage: 2 LITERS OF BISMUTH SUBSALICYLATE TOTAL IN THE LAST TWO WEEKS
     Route: 065

REACTIONS (2)
  - Drug interaction [Unknown]
  - Lactic acidosis [Recovered/Resolved]
